FAERS Safety Report 14185374 (Version 1)
Quarter: 2017Q4

REPORT INFORMATION
  Report Type: Spontaneous
  Country: US (occurrence: US)
  Receive Date: 20171114
  Receipt Date: 20171114
  Transmission Date: 20180321
  Serious: No
  Sender: FDA-Public Use
  Company Number: US-TARO-2017TAR00171

PATIENT
  Age: 66 Year
  Sex: Female

DRUGS (2)
  1. MUPIROCIN OINTMENT USP 2% [Suspect]
     Active Substance: MUPIROCIN
     Indication: INFECTION
     Dosage: UNK UNK, 1X/DAY
     Route: 061
     Dates: start: 20170311, end: 20170311
  2. MUPIROCIN OINTMENT USP 2% [Suspect]
     Active Substance: MUPIROCIN
     Dosage: UNK UNK, 2X/DAY
     Route: 061
     Dates: start: 20170312

REACTIONS (5)
  - Inappropriate schedule of drug administration [Unknown]
  - Pain in extremity [Unknown]
  - Drug administration error [Unknown]
  - Therapeutic response unexpected [Unknown]
  - Off label use [Unknown]

NARRATIVE: CASE EVENT DATE: 201703
